FAERS Safety Report 10701816 (Version 1)
Quarter: 2015Q1

REPORT INFORMATION
  Report Type: Spontaneous
  Country: US (occurrence: US)
  Receive Date: 20150109
  Receipt Date: 20150109
  Transmission Date: 20150721
  Serious: No
  Sender: FDA-Public Use
  Company Number: US-GLAXOSMITHKLINE-US2014GSK025578

PATIENT
  Sex: Female

DRUGS (5)
  1. OXYGEN. [Concomitant]
     Active Substance: OXYGEN
  2. SUPPLEMENT [Concomitant]
     Active Substance: UNSPECIFIED INGREDIENT
  3. HYDROCODONE [Concomitant]
     Active Substance: HYDROCODONE
  4. ANORO ELLIPTA [Suspect]
     Active Substance: UMECLIDINIUM BROMIDE\VILANTEROL TRIFENATATE
     Indication: EMPHYSEMA
     Dosage: 1 PUFF(S), QD
     Route: 055
     Dates: start: 201411
  5. OXYCONTIN [Concomitant]
     Active Substance: OXYCODONE HYDROCHLORIDE

REACTIONS (4)
  - Fatigue [Unknown]
  - Heart rate increased [Unknown]
  - Dyspnoea [Unknown]
  - Muscular weakness [Unknown]

NARRATIVE: CASE EVENT DATE: 201411
